FAERS Safety Report 17020697 (Version 1)
Quarter: 2019Q4

REPORT INFORMATION
  Report Type: Spontaneous
  Country: US (occurrence: US)
  Receive Date: 20191007
  Receipt Date: 20191007
  Transmission Date: 20200122
  Serious: Yes (Life-Threatening, Hospitalization)
  Sender: FDA-Public Use
  Company Number: None

PATIENT
  Age: 66 Year
  Sex: Male
  Weight: 108 kg

DRUGS (17)
  1. POTASSIUM CHLORIDE IN WATER [Concomitant]
  2. GUAIFENESIN. [Concomitant]
     Active Substance: GUAIFENESIN
  3. ONDANSETRON [Concomitant]
     Active Substance: ONDANSETRON
  4. FENTANYL. [Concomitant]
     Active Substance: FENTANYL
  5. IODIXANOL. [Concomitant]
     Active Substance: IODIXANOL
  6. IPRATROPIUM-ALBUTEROL [Concomitant]
     Active Substance: ALBUTEROL\IPRATROPIUM
  7. ALBUTEROL. [Concomitant]
     Active Substance: ALBUTEROL
  8. DEXTROSE 5% IN WATER [Concomitant]
  9. GLUCAGON. [Concomitant]
     Active Substance: GLUCAGON
  10. POTASSIUM CHLORIDE. [Concomitant]
     Active Substance: POTASSIUM CHLORIDE
  11. NIVOLUMAB [Suspect]
     Active Substance: NIVOLUMAB
     Indication: OESOPHAGEAL CARCINOMA
     Dosage: ?          OTHER FREQUENCY:EVERY 2 WKS;?
     Route: 042
     Dates: start: 20190509, end: 20190703
  12. DEXTROSE. [Concomitant]
     Active Substance: DEXTROSE
  13. OXYCODONE [Concomitant]
     Active Substance: OXYCODONE
  14. RELATLIMAB [Suspect]
     Active Substance: RELATLIMAB
     Dosage: ?          OTHER FREQUENCY:EVERY 2 WEEKS;?
     Route: 042
     Dates: start: 20190509, end: 20190703
  15. ALTEPLASE. [Suspect]
     Active Substance: ALTEPLASE
  16. MELATONIN [Concomitant]
     Active Substance: MELATONIN
  17. POTASSIUM CHLORIDE IN WATER [Concomitant]

REACTIONS (5)
  - Pericarditis [None]
  - Pericardial effusion [None]
  - Adrenal insufficiency [None]
  - Hypotension [None]
  - Pneumonia [None]

NARRATIVE: CASE EVENT DATE: 20190909
